FAERS Safety Report 9419024 (Version 1)
Quarter: 2013Q3

REPORT INFORMATION
  Report Type: Spontaneous
  Country: US (occurrence: US)
  Receive Date: 20130725
  Receipt Date: 20130725
  Transmission Date: 20140515
  Serious: Yes (Other)
  Sender: FDA-Public Use
  Company Number: PHEH2013US015643

PATIENT
  Sex: Female

DRUGS (1)
  1. DIOVAN [Suspect]
     Dosage: 1 UKN (160MG), QD

REACTIONS (3)
  - Brain neoplasm [Unknown]
  - Cardiac disorder [Unknown]
  - Back pain [Unknown]
